FAERS Safety Report 18220459 (Version 3)
Quarter: 2020Q3

REPORT INFORMATION
  Report Type: Report from Study
  Country: None (occurrence: US)
  Receive Date: 20200902
  Receipt Date: 20200909
  Transmission Date: 20201103
  Serious: Yes (Hospitalization)
  Sender: FDA-Public Use
  Company Number: US-ABBVIE-20K-163-3545380-00

PATIENT
  Age: 81 Year
  Sex: Male
  Weight: 65.83 kg

DRUGS (9)
  1. DUOPA [Suspect]
     Active Substance: CARBIDOPA\LEVODOPA
     Indication: PARKINSON^S DISEASE
     Route: 050
     Dates: start: 20191011
  2. DUOPA [Suspect]
     Active Substance: CARBIDOPA\LEVODOPA
  3. LUMIGAN [Concomitant]
     Active Substance: BIMATOPROST
     Indication: GLAUCOMA
  4. NORVASC [Concomitant]
     Active Substance: AMLODIPINE BESYLATE
     Indication: PRODUCT USED FOR UNKNOWN INDICATION
     Route: 048
  5. COENZYME Q10 [Concomitant]
     Active Substance: DIETARY SUPPLEMENT\UBIDECARENONE
     Indication: SUPPLEMENTATION THERAPY
  6. OCUVITE [Concomitant]
     Active Substance: VITAMINS
     Indication: PRODUCT USED FOR UNKNOWN INDICATION
     Dosage: 200?15MCG
  7. LATANOPROST. [Concomitant]
     Active Substance: LATANOPROST
     Indication: PRODUCT USED FOR UNKNOWN INDICATION
     Dosage: 0.005% BOTH EYES
  8. METFORMIN [Concomitant]
     Active Substance: METFORMIN HYDROCHLORIDE
     Indication: PRODUCT USED FOR UNKNOWN INDICATION
     Route: 048
  9. VITAMIN B12 [Concomitant]
     Active Substance: CYANOCOBALAMIN
     Indication: SUPPLEMENTATION THERAPY

REACTIONS (13)
  - Pain [Recovering/Resolving]
  - Device breakage [Not Recovered/Not Resolved]
  - Foreign body in respiratory tract [Recovering/Resolving]
  - Gait disturbance [Not Recovered/Not Resolved]
  - Device occlusion [Unknown]
  - Dysstasia [Not Recovered/Not Resolved]
  - Device dislocation [Recovered/Resolved]
  - Choking [Recovered/Resolved]
  - Dry mouth [Recovering/Resolving]
  - Incontinence [Not Recovered/Not Resolved]
  - Device leakage [Not Recovered/Not Resolved]
  - Pneumonia aspiration [Recovering/Resolving]
  - Pyrexia [Recovered/Resolved]

NARRATIVE: CASE EVENT DATE: 2020
